FAERS Safety Report 4735180-1 (Version None)
Quarter: 2005Q3

REPORT INFORMATION
  Report Type: 
  Country: None (occurrence: None)
  Receive Date: 20050804
  Receipt Date: 20050719
  Transmission Date: 20060218
  Serious: Yes (Hospitalization)
  Sender: FDA-Public Use
  Company Number: US-2005-010149

PATIENT
  Age: 51 Year
  Sex: Male
  Weight: 69.3 kg

DRUGS (1)
  1. BETASERON [Suspect]
     Indication: RELAPSING-REMITTING MULTIPLE SCLEROSIS
     Dosage: 8 MIU, EVERY 2D, INTRAMUSCULAR
     Route: 030
     Dates: start: 19950525, end: 20041201

REACTIONS (25)
  - ASTHENIA [None]
  - BRAIN NEOPLASM [None]
  - CATHETER RELATED COMPLICATION [None]
  - COMA [None]
  - DEPRESSION [None]
  - DIZZINESS [None]
  - EPISTAXIS [None]
  - FALL [None]
  - GLOMERULONEPHRITIS RAPIDLY PROGRESSIVE [None]
  - GOODPASTURE'S SYNDROME [None]
  - HAEMATURIA [None]
  - HAEMODIALYSIS [None]
  - HYPERTENSIVE NEPHROPATHY [None]
  - HYPOTENSION [None]
  - INCORRECT ROUTE OF DRUG ADMINISTRATION [None]
  - JOINT INJURY [None]
  - MEDICATION ERROR [None]
  - MENTAL STATUS CHANGES [None]
  - NERVOUS SYSTEM DISORDER [None]
  - NUCLEAR MAGNETIC RESONANCE IMAGING BRAIN ABNORMAL [None]
  - PANCYTOPENIA [None]
  - PERITONITIS [None]
  - RENAL FAILURE ACUTE [None]
  - RENAL NECROSIS [None]
  - VENTRICULAR EXTRASYSTOLES [None]
